FAERS Safety Report 16557333 (Version 5)
Quarter: 2020Q4

REPORT INFORMATION
  Report Type: Report from Study
  Country: US (occurrence: US)
  Receive Date: 20190711
  Receipt Date: 20201028
  Transmission Date: 20210113
  Serious: No
  Sender: FDA-Public Use
  Company Number: PHEH2019US028563

PATIENT
  Sex: Female

DRUGS (2)
  1. ENTRESTO [Suspect]
     Active Substance: SACUBITRIL\VALSARTAN
     Indication: CARDIAC FAILURE
     Dosage: UNK UNK, BID
     Route: 048
  2. ENTRESTO [Suspect]
     Active Substance: SACUBITRIL\VALSARTAN
     Dosage: 200 MG, BID (103/97 MG)
     Route: 048

REACTIONS (6)
  - Blood potassium increased [Not Recovered/Not Resolved]
  - Wrong technique in product usage process [Unknown]
  - Blood pressure decreased [Unknown]
  - Seasonal allergy [Unknown]
  - Cough [Unknown]
  - Blood potassium abnormal [Unknown]
